FAERS Safety Report 17841405 (Version 6)
Quarter: 2022Q1

REPORT INFORMATION
  Report Type: Spontaneous
  Country: CN (occurrence: None)
  Receive Date: 20200529
  Receipt Date: 20220128
  Transmission Date: 20220424
  Serious: Yes (Other)
  Sender: FDA-Public Use
  Company Number: CN-ROCHE-2609148

PATIENT
  Age: 56 Year
  Sex: Male

DRUGS (30)
  1. MABTHERA [Suspect]
     Active Substance: RITUXIMAB
     Indication: Diffuse large B-cell lymphoma
     Route: 065
     Dates: start: 20200407
  2. MABTHERA [Suspect]
     Active Substance: RITUXIMAB
     Dosage: DAY 0 21 DAYS A CYCLES
     Route: 065
     Dates: start: 20200425
  3. MABTHERA [Suspect]
     Active Substance: RITUXIMAB
     Route: 065
     Dates: start: 20200405, end: 20200409
  4. MABTHERA [Suspect]
     Active Substance: RITUXIMAB
     Dosage: 18 SEP 2020 AND 15 OCT 2020, DAY 0
     Route: 065
     Dates: start: 20200824
  5. MABTHERA [Suspect]
     Active Substance: RITUXIMAB
     Dosage: ON 08/DEC/2020 AND 05/JAN/2021
     Route: 065
     Dates: start: 20201208
  6. OBINUTUZUMAB [Suspect]
     Active Substance: OBINUTUZUMAB
     Indication: Diffuse large B-cell lymphoma
     Dosage: ON 17/NOV/2021 AND 30/NOV/2021
     Route: 042
  7. CYCLOPHOSPHAMIDE [Concomitant]
     Active Substance: CYCLOPHOSPHAMIDE
     Indication: Diffuse large B-cell lymphoma
     Dates: start: 20200407
  8. CYCLOPHOSPHAMIDE [Concomitant]
     Active Substance: CYCLOPHOSPHAMIDE
     Dates: start: 20200425
  9. CYCLOPHOSPHAMIDE [Concomitant]
     Active Substance: CYCLOPHOSPHAMIDE
     Dosage: 0.3G ON DAY 1-3, 0.45G ON DAY 4
     Dates: start: 20200405, end: 20200409
  10. EPIRUBICIN [Concomitant]
     Active Substance: EPIRUBICIN
     Indication: Diffuse large B-cell lymphoma
     Dates: start: 20200407
  11. EPIRUBICIN [Concomitant]
     Active Substance: EPIRUBICIN
     Dosage: ON DAY 5
     Dates: start: 20200405, end: 20200409
  12. VINDESINE [Concomitant]
     Active Substance: VINDESINE
     Indication: Diffuse large B-cell lymphoma
     Dates: start: 20200407
  13. VINDESINE [Concomitant]
     Active Substance: VINDESINE
     Dates: start: 20200425
  14. VINDESINE [Concomitant]
     Active Substance: VINDESINE
     Dosage: ON DAY 4
     Dates: start: 20200405, end: 20200409
  15. PREDNISONE [Concomitant]
     Active Substance: PREDNISONE
     Indication: Diffuse large B-cell lymphoma
     Dates: start: 20200407
  16. PIPERACILLIN SODIUM\TAZOBACTAM SODIUM [Concomitant]
     Active Substance: PIPERACILLIN SODIUM\TAZOBACTAM SODIUM
  17. MOXIFLOXACIN [Concomitant]
     Active Substance: MOXIFLOXACIN
  18. IMIPENEM AND CILASTATIN [Concomitant]
     Active Substance: CILASTATIN SODIUM\IMIPENEM
  19. CASPOFUNGIN [Concomitant]
     Active Substance: CASPOFUNGIN
  20. TIGECYCLINE [Concomitant]
     Active Substance: TIGECYCLINE
  21. CEFDINIR [Concomitant]
     Active Substance: CEFDINIR
     Route: 048
     Dates: start: 20200425
  22. VORICONAZOLE [Concomitant]
     Active Substance: VORICONAZOLE
  23. DOXORUBICIN [Concomitant]
     Active Substance: DOXORUBICIN
     Indication: Diffuse large B-cell lymphoma
     Dates: start: 20200425
  24. METHYLPREDNISOLONE SODIUM SUCCINATE [Concomitant]
     Active Substance: METHYLPREDNISOLONE SODIUM SUCCINATE
     Dates: start: 20200425
  25. BORTEZOMIB [Concomitant]
     Active Substance: BORTEZOMIB
     Indication: Diffuse large B-cell lymphoma
     Dosage: ON DAY 1, 4, 8,11
     Dates: start: 20200425
  26. BORTEZOMIB [Concomitant]
     Active Substance: BORTEZOMIB
     Dosage: ON DAY 1, 4, 8,11
     Dates: start: 20200525
  27. AZTREONAM [Concomitant]
     Active Substance: AZTREONAM
  28. DEXAMETHASONE [Concomitant]
     Active Substance: DEXAMETHASONE
     Indication: Diffuse large B-cell lymphoma
     Dosage: ON DAY 1-5
     Dates: start: 20200405, end: 20200409
  29. VENETOCLAX [Concomitant]
     Active Substance: VENETOCLAX
     Indication: Diffuse large B-cell lymphoma
     Dosage: STARTED WITH 50MG PER DAY AND INCREASED TO 300MG PER DAY, FOLLOWED BY A DOSE REDUCTION TO 200MG PER
     Dates: start: 20200525
  30. TISLELIZUMAB [Concomitant]
     Active Substance: TISLELIZUMAB
     Indication: Diffuse large B-cell lymphoma
     Dosage: ON 27 JAN 2021 AND 08 APR 2021

REACTIONS (6)
  - Myelosuppression [Unknown]
  - Pneumonia [Unknown]
  - Gastrointestinal disorder [Unknown]
  - Neuritis [Unknown]
  - Disease recurrence [Unknown]
  - Off label use [Unknown]

NARRATIVE: CASE EVENT DATE: 20211101
